FAERS Safety Report 9421494 (Version 2)
Quarter: 2014Q2

REPORT INFORMATION
  Report Type: Spontaneous
  Country: US (occurrence: US)
  Receive Date: 20130726
  Receipt Date: 20140516
  Transmission Date: 20141212
  Serious: Yes (Other)
  Sender: FDA-Public Use
  Company Number: US-BIOGENIDEC-2013BI065408

PATIENT
  Sex: 0

DRUGS (2)
  1. TYSABRI [Suspect]
     Indication: PRODUCT USED FOR UNKNOWN INDICATION
  2. AMPYRA [Concomitant]

REACTIONS (1)
  - Anaphylactic shock [Unknown]
